FAERS Safety Report 18306268 (Version 1)
Quarter: 2020Q3

REPORT INFORMATION
  Report Type: Spontaneous
  Country: FR (occurrence: FR)
  Receive Date: 20200924
  Receipt Date: 20200924
  Transmission Date: 20201103
  Serious: Yes (Hospitalization)
  Sender: FDA-Public Use
  Company Number: ALC2020FR007556

PATIENT

DRUGS (1)
  1. SKIACOL [Suspect]
     Active Substance: CYCLOPENTOLATE
     Indication: OPHTHALMOLOGICAL EXAMINATION
     Dosage: 7 DRP, ONCE/SINGLE
     Route: 047
     Dates: start: 20200904

REACTIONS (4)
  - Vomiting [Recovered/Resolved]
  - Incorrect dose administered [Recovered/Resolved]
  - Abdominal pain [Recovered/Resolved]
  - Medication error [Recovered/Resolved]

NARRATIVE: CASE EVENT DATE: 20200904
